FAERS Safety Report 4361165-3 (Version None)
Quarter: 2004Q2

REPORT INFORMATION
  Report Type: 
  Country: None (occurrence: None)
  Receive Date: 20040507
  Receipt Date: 20031219
  Transmission Date: 20050107
  Serious: Yes (Other)
  Sender: FDA-Public Use
  Company Number: PHEH2003US10464

PATIENT
  Age: 50 Year
  Sex: Female

DRUGS (9)
  1. TEGRETOL [Suspect]
     Indication: CONVULSION
     Dosage: SEE IMAGE
     Route: 048
     Dates: start: 20030801, end: 20031111
  2. TEGRETOL [Suspect]
     Indication: CONVULSION
     Dosage: SEE IMAGE
     Route: 048
     Dates: start: 20031112
  3. ATENOLOL [Concomitant]
  4. ZOLOFT [Concomitant]
  5. ASPIRIN [Concomitant]
  6. ESTRADIOL [Concomitant]
  7. LEVSINEX [Concomitant]
  8. AVONEX [Concomitant]
  9. PERI-COLACE (CASANTHRANOL) [Concomitant]

REACTIONS (2)
  - CONVULSION [None]
  - DRUG LEVEL DECREASED [None]
